FAERS Safety Report 20981019 (Version 1)
Quarter: 2022Q2

REPORT INFORMATION
  Report Type: Spontaneous
  Country: US (occurrence: US)
  Receive Date: 20220620
  Receipt Date: 20220620
  Transmission Date: 20220721
  Serious: Yes (Hospitalization, Other)
  Sender: FDA-Public Use
  Company Number: US-SANOFI-01144268

PATIENT
  Age: 42 Year
  Sex: Female

DRUGS (1)
  1. LEMTRADA [Suspect]
     Active Substance: ALEMTUZUMAB
     Dosage: UNK
     Dates: start: 2017, end: 2017

REACTIONS (5)
  - Eosinophilic pneumonia [Unknown]
  - Polychondritis [Unknown]
  - Pneumonia [Unknown]
  - Viral infection [Unknown]
  - Skin disorder [Unknown]

NARRATIVE: CASE EVENT DATE: 20210101
